FAERS Safety Report 14593106 (Version 2)
Quarter: 2018Q2

REPORT INFORMATION
  Report Type: Spontaneous
  Country: US (occurrence: US)
  Receive Date: 20180302
  Receipt Date: 20180418
  Transmission Date: 20180711
  Serious: Yes (Hospitalization, Other)
  Sender: FDA-Public Use
  Company Number: US-SAOL THERAPEUTICS-2018SAO00266

PATIENT
  Sex: Male

DRUGS (4)
  1. BACLOFEN. [Suspect]
     Active Substance: BACLOFEN
     Indication: POST LAMINECTOMY SYNDROME
     Route: 037
  2. DILAUDID [Suspect]
     Active Substance: HYDROMORPHONE HYDROCHLORIDE
     Dosage: UNK UNK, \DAY
     Route: 037
  3. UNSPECIFIED MEDICATIONS [Concomitant]
     Active Substance: UNSPECIFIED INGREDIENT
  4. BACLOFEN. [Suspect]
     Active Substance: BACLOFEN
     Indication: SPINAL PAIN

REACTIONS (9)
  - Drug effective for unapproved indication [Not Recovered/Not Resolved]
  - Confusional state [Recovered/Resolved]
  - Internal haemorrhage [Recovered/Resolved]
  - Blood pressure increased [Unknown]
  - Speech disorder [Unknown]
  - Fall [Recovered/Resolved]
  - Atrial fibrillation [Unknown]
  - Hospice care [Not Recovered/Not Resolved]
  - Lower limb fracture [Recovered/Resolved]

NARRATIVE: CASE EVENT DATE: 20151025
